FAERS Safety Report 19907187 (Version 4)
Quarter: 2022Q2

REPORT INFORMATION
  Report Type: Report from Study
  Country: US (occurrence: US)
  Receive Date: 20211001
  Receipt Date: 20220407
  Transmission Date: 20220721
  Serious: Yes (Death, Life-Threatening, Hospitalization, Other)
  Sender: FDA-Public Use
  Company Number: US-BRISTOL-MYERS SQUIBB COMPANY-BMS-2021-098190

PATIENT
  Age: 58 Year
  Sex: Female
  Weight: 58.9 kg

DRUGS (2)
  1. ORENCIA [Suspect]
     Active Substance: ABATACEPT
     Indication: Graft versus host disease
  2. VALGANCICLOVIR [Suspect]
     Active Substance: VALGANCICLOVIR
     Indication: Graft versus host disease
     Dosage: 450 MILLIGRAM, QD
     Route: 048
     Dates: start: 20210813, end: 20210902

REACTIONS (6)
  - Transplant failure [Unknown]
  - Acute respiratory failure [Unknown]
  - Escherichia bacteraemia [Unknown]
  - Thrombocytopenia [Unknown]
  - Central nervous system infection [Unknown]
  - Febrile neutropenia [Fatal]

NARRATIVE: CASE EVENT DATE: 20210818
